FAERS Safety Report 12505130 (Version 1)
Quarter: 2016Q2

REPORT INFORMATION
  Report Type: Spontaneous
  Country: GB (occurrence: GB)
  Receive Date: 20160628
  Receipt Date: 20160628
  Transmission Date: 20160815
  Serious: Yes (Hospitalization)
  Sender: FDA-Public Use
  Company Number: GB-WATSON-2016-12960

PATIENT
  Age: 56 Year
  Sex: Female

DRUGS (3)
  1. ROACTEMRA [Suspect]
     Active Substance: TOCILIZUMAB
     Indication: RHEUMATOID ARTHRITIS
     Dosage: 162 MG, 1/WEEK
     Route: 058
     Dates: start: 20151230, end: 20160418
  2. ROACTEMRA [Suspect]
     Active Substance: TOCILIZUMAB
     Dosage: UNK UNK, UNKNOWN
     Route: 042
     Dates: start: 201504
  3. PREDNISOLONE (UNKNOWN) [Suspect]
     Active Substance: PREDNISOLONE
     Indication: RHEUMATOID ARTHRITIS
     Dosage: 7.5 MG, UNKNOWN
     Route: 048

REACTIONS (3)
  - Arthritis bacterial [Recovered/Resolved with Sequelae]
  - Oedema [Unknown]
  - Blister [Unknown]

NARRATIVE: CASE EVENT DATE: 20160418
